FAERS Safety Report 23606122 (Version 1)
Quarter: 2024Q1

REPORT INFORMATION
  Report Type: Spontaneous
  Country: AT (occurrence: AT)
  Receive Date: 20240307
  Receipt Date: 20240307
  Transmission Date: 20240409
  Serious: Yes (Other)
  Sender: FDA-Public Use
  Company Number: AT-009507513-2402AUT009003

PATIENT
  Sex: Female

DRUGS (7)
  1. CARBOPLATIN [Suspect]
     Active Substance: CARBOPLATIN
     Indication: Metaplastic breast carcinoma
     Dosage: UNK, WEEKLY
     Dates: start: 20221229, end: 20230327
  2. EPIRUBICIN HYDROCHLORIDE [Suspect]
     Active Substance: EPIRUBICIN HYDROCHLORIDE
     Indication: Metaplastic breast carcinoma
     Dosage: UNK
     Dates: start: 20230403, end: 20230614
  3. PEMBROLIZUMAB [Suspect]
     Active Substance: PEMBROLIZUMAB
     Indication: Metaplastic breast carcinoma
     Dosage: UNK
     Dates: start: 20221229, end: 20230327
  4. PEMBROLIZUMAB [Suspect]
     Active Substance: PEMBROLIZUMAB
     Dosage: UNK
     Dates: start: 20230403, end: 20230614
  5. PEMBROLIZUMAB [Suspect]
     Active Substance: PEMBROLIZUMAB
     Dosage: 9X
     Dates: start: 20230718
  6. PACLITAXEL [Suspect]
     Active Substance: PACLITAXEL
     Indication: Metaplastic breast carcinoma
     Dosage: UNK, WEEKLY
     Dates: start: 20221229, end: 20230327
  7. CAPECITABINE [Suspect]
     Active Substance: CAPECITABINE
     Indication: Metaplastic breast carcinoma
     Dosage: 8X
     Dates: start: 20230718

REACTIONS (13)
  - Tumour necrosis [Unknown]
  - Neuropathy peripheral [Unknown]
  - Neutropenia [Unknown]
  - Brain natriuretic peptide increased [Unknown]
  - Immune-mediated dermatitis [Unknown]
  - Anaemia [Unknown]
  - Fatigue [Unknown]
  - Dyspnoea [Unknown]
  - Physical deconditioning [Unknown]
  - Rash [Unknown]
  - Neoplasm progression [Unknown]
  - General physical health deterioration [Unknown]
  - Off label use [Unknown]

NARRATIVE: CASE EVENT DATE: 20221229
